FAERS Safety Report 9287951 (Version 3)
Quarter: 2013Q2

REPORT INFORMATION
  Report Type: Spontaneous
  Country: JP (occurrence: JP)
  Receive Date: 20130514
  Receipt Date: 20130614
  Transmission Date: 20140414
  Serious: Yes (Other)
  Sender: FDA-Public Use
  Company Number: JP-PFIZER INC-2013146932

PATIENT
  Age: 72 Year
  Sex: Female
  Weight: 48 kg

DRUGS (9)
  1. LYRICA [Suspect]
     Indication: SENSORY DISTURBANCE
     Dosage: 150 MG/DAY
     Route: 048
     Dates: start: 20130416, end: 20130418
  2. LYRICA [Suspect]
     Indication: NEUROPATHY PERIPHERAL
  3. BAKTAR [Suspect]
     Indication: INFECTION PROPHYLAXIS
     Dosage: 1 TABLET, 1X/DAY
     Route: 048
     Dates: start: 20130405, end: 20130420
  4. RASENAZOLIN [Concomitant]
     Dosage: UNK
  5. TAKEPRON [Concomitant]
     Dosage: UNK
  6. PREDONINE [Concomitant]
     Dosage: UNK
  7. METHYCOBAL [Concomitant]
     Dosage: UNK
  8. MAG-LAX [Concomitant]
     Dosage: UNK
  9. REBAMIPIDE [Concomitant]
     Dosage: UNK

REACTIONS (1)
  - Erythema multiforme [Recovered/Resolved]
